FAERS Safety Report 5891387-1 (Version None)
Quarter: 2008Q3

REPORT INFORMATION
  Report Type: 
  Country: None (occurrence: None)
  Receive Date: 20080918
  Receipt Date: 20080918
  Transmission Date: 20090109
  Serious: Yes (Hospitalization)
  Sender: FDA-Public Use
  Company Number: None

PATIENT
  Age: 61 Year
  Sex: Male
  Weight: 175 kg

DRUGS (17)
  1. LEVAQUIN [Suspect]
     Indication: BACTERAEMIA
     Dosage: 500MG DAILY PO
     Route: 048
     Dates: start: 20080814, end: 20080819
  2. LEVAQUIN [Suspect]
     Indication: OSTEOMYELITIS
     Dosage: 500MG DAILY PO
     Route: 048
     Dates: start: 20080814, end: 20080819
  3. INSULIN [Concomitant]
  4. WARFARIN SODIUM [Concomitant]
  5. ENOXAPARIN SODIUM [Concomitant]
  6. KCI [Concomitant]
  7. FERROUS SUL TAB [Concomitant]
  8. METFORMIN HCL [Concomitant]
  9. IMIPRAMINE [Concomitant]
  10. HYDRALAZINE HCL [Concomitant]
  11. FUROSEMIDE [Concomitant]
  12. ENALAPRIL MALEATE [Concomitant]
  13. SIMVASTATIN [Concomitant]
  14. AVANDIA [Concomitant]
  15. MORPHINE [Concomitant]
  16. ZOLPIDEM [Concomitant]
  17. VICODIN [Concomitant]

REACTIONS (3)
  - BELLIGERENCE [None]
  - CONFUSIONAL STATE [None]
  - HALLUCINATION, VISUAL [None]
